FAERS Safety Report 10192512 (Version 1)
Quarter: 2014Q2

REPORT INFORMATION
  Report Type: Spontaneous
  Country: TW (occurrence: TW)
  Receive Date: 20140523
  Receipt Date: 20140523
  Transmission Date: 20141212
  Serious: Yes (Other)
  Sender: FDA-Public Use
  Company Number: PHHY2014TW062348

PATIENT
  Sex: Female

DRUGS (1)
  1. ACLASTA [Suspect]
     Indication: OSTEOPOROSIS
     Dosage: 5 MG ONCE YEAR
     Route: 042
     Dates: start: 201306

REACTIONS (5)
  - Uterine leiomyoma [Unknown]
  - Haemorrhage [Unknown]
  - Weight increased [Unknown]
  - Obesity [Unknown]
  - Acute phase reaction [Recovered/Resolved]
